FAERS Safety Report 7628238 (Version 4)
Quarter: 2019Q1

REPORT INFORMATION
  Report Type: Spontaneous
  Country: US (occurrence: US)
  Receive Date: 20101013
  Receipt Date: 20190320
  Transmission Date: 20190418
  Serious: Yes (Hospitalization)
  Sender: FDA-Public Use
  Company Number: US-ASTRAZENECA-2010SE34046

PATIENT
  Age: 25848 Day
  Sex: Female
  Weight: 78 kg

DRUGS (42)
  1. AZELASTINE HYDROCHLORIDE. [Concomitant]
     Active Substance: AZELASTINE HYDROCHLORIDE
     Indication: RHINITIS
  2. CHOLECALCIFEROL [Concomitant]
     Active Substance: CHOLECALCIFEROL
  3. FLUTICASONE PROPIONATE. [Concomitant]
     Active Substance: FLUTICASONE PROPIONATE
  4. METRONIDAZOLE. [Concomitant]
     Active Substance: METRONIDAZOLE
     Indication: ROSACEA
  5. OMEPRAZOLE. [Concomitant]
     Active Substance: OMEPRAZOLE
     Indication: GASTROOESOPHAGEAL REFLUX DISEASE
  6. LACTASE [Concomitant]
     Active Substance: LACTASE
  7. MECLIZINE HYDROCHLORIDE. [Concomitant]
     Active Substance: MECLIZINE HYDROCHLORIDE
  8. FLUTICASONE PROPIONATE. [Concomitant]
     Active Substance: FLUTICASONE PROPIONATE
  9. MULTIVITAMINS [Concomitant]
     Active Substance: VITAMINS
  10. LIDOCAINE HYDROCHLORIDE. [Concomitant]
     Active Substance: LIDOCAINE HYDROCHLORIDE
  11. CODEINE [Concomitant]
     Active Substance: CODEINE
  12. SORBITOL SOLUTION [Concomitant]
     Active Substance: SORBITOL
     Indication: CONSTIPATION
  13. TACROLIMUS. [Concomitant]
     Active Substance: TACROLIMUS
     Indication: INFLAMMATION
  14. WARFARIN [Concomitant]
     Active Substance: WARFARIN
     Indication: DEEP VEIN THROMBOSIS
     Route: 048
  15. DOFETILIDE. [Suspect]
     Active Substance: DOFETILIDE
     Indication: ATRIAL FIBRILLATION
     Route: 048
     Dates: start: 2018
  16. DOCUSATE SODIUM. [Concomitant]
     Active Substance: DOCUSATE SODIUM
     Indication: FAECES HARD
  17. SYMBICORT [Suspect]
     Active Substance: BUDESONIDE\FORMOTEROL FUMARATE DIHYDRATE
     Dosage: 80/4.5, 2 PUFFS
     Route: 055
  18. PETROLATUM. [Concomitant]
     Active Substance: PETROLATUM
  19. SYMBICORT [Suspect]
     Active Substance: BUDESONIDE\FORMOTEROL FUMARATE DIHYDRATE
     Dosage: 160/4.5
     Route: 055
  20. FUROSEMIDE. [Concomitant]
     Active Substance: FUROSEMIDE
  21. MUPIROCIN. [Concomitant]
     Active Substance: MUPIROCIN
  22. ZOLEDRONIC ACID [Concomitant]
     Active Substance: ZOLEDRONIC ACID
  23. LISINOPRIL. [Suspect]
     Active Substance: LISINOPRIL
     Route: 048
  24. METOPROLOL. [Suspect]
     Active Substance: METOPROLOL
     Route: 048
  25. SODIUM CHLORIDE. [Concomitant]
     Active Substance: SODIUM CHLORIDE
  26. ALBUTEROL. [Concomitant]
     Active Substance: ALBUTEROL
  27. TOPROL XL [Suspect]
     Active Substance: METOPROLOL SUCCINATE
     Indication: CARDIAC DISORDER
     Route: 048
     Dates: end: 20180808
  28. ASPIRIN. [Concomitant]
     Active Substance: ASPIRIN
  29. ACIDOPHILUS CAPLET [Concomitant]
  30. MAGNESIUM [Concomitant]
     Active Substance: MAGNESIUM
  31. MOMETASONE FUROATE. [Concomitant]
     Active Substance: MOMETASONE FUROATE
  32. NITROGLYCERIN. [Concomitant]
     Active Substance: NITROGLYCERIN
     Indication: ANGINA PECTORIS
  33. PSYLLIUM SEED/SUCROSE PWD [Concomitant]
  34. DESOXIMETASONE. [Concomitant]
     Active Substance: DESOXIMETASONE
  35. GLYCERIN. [Concomitant]
     Active Substance: GLYCERIN
  36. LORATADINE. [Concomitant]
     Active Substance: LORATADINE
  37. DOFETILIDE. [Suspect]
     Active Substance: DOFETILIDE
     Indication: CARDIAC DISORDER
     Route: 048
     Dates: start: 2018
  38. CALCIUM [Concomitant]
     Active Substance: CALCIUM
  39. DOXYCYCLINE HYCLATE. [Concomitant]
     Active Substance: DOXYCYCLINE HYCLATE
  40. LANOLIN/MIN OIL/PETROLATUM OINT [Concomitant]
  41. HYDROCODONE [Concomitant]
     Active Substance: HYDROCODONE
  42. IPRATROPIUM BROMIDE. [Concomitant]
     Active Substance: IPRATROPIUM BROMIDE

REACTIONS (13)
  - Memory impairment [Unknown]
  - Cough [Recovered/Resolved]
  - Peripheral swelling [Recovered/Resolved]
  - Weight increased [Recovered/Resolved]
  - Joint swelling [Recovered/Resolved]
  - Pain in extremity [Recovered/Resolved]
  - Fall [Recovered/Resolved]
  - Back pain [Recovered/Resolved]
  - Arthralgia [Recovered/Resolved]
  - Abdominal distension [Recovered/Resolved]
  - Dizziness [Recovered/Resolved]
  - Inappropriate schedule of product administration [Unknown]
  - Atrial fibrillation [Unknown]

NARRATIVE: CASE EVENT DATE: 20100607
